FAERS Safety Report 7731168-7 (Version None)
Quarter: 2011Q3

REPORT INFORMATION
  Report Type: 
  Country: None (occurrence: None)
  Receive Date: 20110906
  Receipt Date: 20110906
  Transmission Date: 20111222
  Serious: Yes (Other)
  Sender: FDA-Public Use
  Company Number: None

PATIENT
  Age: 46 Year
  Sex: Female
  Weight: 106.59 kg

DRUGS (1)
  1. CETIRIZINE HYDROCHLORIDE [Suspect]
     Indication: ARTHROPOD STING
     Dosage: 1 10MG TABLET
     Route: 048
     Dates: start: 20110325, end: 20110905

REACTIONS (1)
  - NO ADVERSE EVENT [None]
